FAERS Safety Report 25877020 (Version 2)
Quarter: 2025Q4

REPORT INFORMATION
  Report Type: Spontaneous
  Country: EU (occurrence: EU)
  Receive Date: 20251003
  Receipt Date: 20251008
  Transmission Date: 20260117
  Serious: Yes (Other)
  Sender: OTSUKA
  Company Number: None

PATIENT
  Sex: Female
  Weight: 160 kg

DRUGS (1)
  1. ABILIFY [Suspect]
     Active Substance: ARIPIPRAZOLE
     Indication: Product used for unknown indication
     Dosage: 70 MG, QD (7 TABLETS)
     Dates: start: 2013

REACTIONS (1)
  - Obesity [Not Recovered/Not Resolved]

NARRATIVE: CASE EVENT DATE: 20130101
